FAERS Safety Report 12056675 (Version 1)
Quarter: 2016Q1

REPORT INFORMATION
  Report Type: Other
  Country: US (occurrence: US)
  Receive Date: 20160209
  Receipt Date: 20160209
  Transmission Date: 20160526
  Serious: Yes (Other)
  Sender: FDA-Public Use
  Company Number: US-SHIRE-US201409234

PATIENT
  Age: 35 Year
  Sex: Female
  Weight: 63.95 kg

DRUGS (9)
  1. HYDROXIZINE HCL [Concomitant]
     Indication: PRURITUS
     Dosage: ONE TO THREE 10 MG TABLETS, OTHER (AS REQ^D AT HS)
     Route: 065
  2. TAGAMET HB [Concomitant]
     Active Substance: CIMETIDINE
     Indication: HEREDITARY ANGIOEDEMA
     Dosage: UNK, UNKNOWN
     Route: 065
  3. CINRYZE [Suspect]
     Active Substance: HUMAN C1-ESTERASE INHIBITOR
     Indication: HEREDITARY ANGIOEDEMA
     Dosage: 2000 UNITS, OTHER (EVERY 3 DAYS)
     Route: 042
     Dates: start: 20140825
  4. NORMAL SALINE [Concomitant]
     Active Substance: SODIUM CHLORIDE
     Indication: CATHETER MANAGEMENT
     Dosage: (0.9%) 10 ML, UNKNOWN
     Route: 065
  5. SINGULAIR [Concomitant]
     Active Substance: MONTELUKAST SODIUM
     Indication: HEREDITARY ANGIOEDEMA
     Dosage: 10 MG, 1X/DAY:QD (AT HS)
     Route: 065
  6. BENADRYL [Concomitant]
     Active Substance: DIPHENHYDRAMINE HYDROCHLORIDE
     Indication: HEREDITARY ANGIOEDEMA
     Dosage: 25 MG, OTHER (Q4-6 HOURS PRN)
     Route: 048
  7. CINRYZE [Suspect]
     Active Substance: HUMAN C1-ESTERASE INHIBITOR
     Indication: PROPHYLAXIS
  8. ZYRTEC [Concomitant]
     Active Substance: CETIRIZINE HYDROCHLORIDE
     Indication: SEASONAL ALLERGY
     Dosage: 1 DF, OTHER (AS REQ^D AT HS)
     Route: 065
  9. PREDNISONE. [Concomitant]
     Active Substance: PREDNISONE
     Indication: HEREDITARY ANGIOEDEMA
     Dosage: 20 MG (4X5MG TABLETS), 2X/DAY:BID
     Route: 065

REACTIONS (7)
  - Family stress [Unknown]
  - Localised oedema [Unknown]
  - Sensation of foreign body [Unknown]
  - Hereditary angioedema [Unknown]
  - Pharyngeal oedema [Unknown]
  - Swelling face [Unknown]
  - Prescribed overdose [Not Recovered/Not Resolved]

NARRATIVE: CASE EVENT DATE: 20140825
